FAERS Safety Report 5233612-6 (Version None)
Quarter: 2007Q1

REPORT INFORMATION
  Report Type: 
  Country: None (occurrence: None)
  Receive Date: 20061208
  Receipt Date: 20060314
  Transmission Date: 20070707
  Serious: Yes (Other)
  Sender: FDA-Public Use
  Company Number: 2006UW04312

PATIENT
  Age: 74 Year
  Sex: Male
  Weight: 99.79 kg

DRUGS (6)
  1. CRESTOR [Suspect]
     Indication: HYPERCHOLESTEROLAEMIA
     Dosage: 5 MG PO
     Route: 048
     Dates: start: 20060310
  2. PLAVIX [Concomitant]
  3. TOPROL-XL [Concomitant]
  4. ALTACE [Concomitant]
  5. OMEPRAZOLE [Concomitant]
  6. GLYBURIDE [Concomitant]

REACTIONS (1)
  - RESTLESS LEGS SYNDROME [None]
